FAERS Safety Report 10974532 (Version 1)
Quarter: 2015Q2

REPORT INFORMATION
  Report Type: Spontaneous
  Country: DE (occurrence: DE)
  Receive Date: 20150401
  Receipt Date: 20150401
  Transmission Date: 20150821
  Serious: Yes (Other)
  Sender: FDA-Public Use
  Company Number: GXKR2015DE001773

PATIENT
  Sex: Male
  Weight: 68 kg

DRUGS (2)
  1. NEOTAXAN [Suspect]
     Active Substance: PACLITAXEL
     Indication: BRONCHIAL CARCINOMA
  2. NEOTAXAN [Suspect]
     Active Substance: PACLITAXEL
     Indication: PALLIATIVE CARE
     Dosage: 362.9 MG, UNK
     Route: 042
     Dates: start: 20150318

REACTIONS (4)
  - Paravenous drug administration [Unknown]
  - Application site erythema [Unknown]
  - Application site induration [Unknown]
  - Application site oedema [Unknown]

NARRATIVE: CASE EVENT DATE: 20150318
